FAERS Safety Report 22263024 (Version 1)
Quarter: 2023Q2

REPORT INFORMATION
  Report Type: Spontaneous
  Country: IT (occurrence: IT)
  Receive Date: 20230428
  Receipt Date: 20230428
  Transmission Date: 20230721
  Serious: Yes (Other)
  Sender: FDA-Public Use
  Company Number: None

PATIENT
  Age: 78 Year
  Sex: Male

DRUGS (16)
  1. ONDANSETRON [Interacting]
     Active Substance: ONDANSETRON
     Dosage: 4 MG (MILLIGRAM)
     Route: 042
     Dates: start: 20221010, end: 20230117
  2. ONDANSETRON [Interacting]
     Active Substance: ONDANSETRON
     Dosage: 4 MG (MILLIGRAM)
     Route: 042
     Dates: start: 20221010, end: 20230207
  3. LEVOLEUCOVORIN [Interacting]
     Active Substance: LEVOLEUCOVORIN
     Dosage: 350 MG (MILLIGRAM)
     Route: 042
     Dates: start: 20221010, end: 20230117
  4. LEVOLEUCOVORIN [Interacting]
     Active Substance: LEVOLEUCOVORIN
     Dosage: 350 MG (MILLIGRAM), FLUOROURACIL POTENTIATING AGENT IN ANTIBLASTIC CHEMOTHERAPY REGIMEN
     Route: 042
     Dates: start: 20221010, end: 20230207
  5. FLUOROURACIL [Suspect]
     Active Substance: FLUOROURACIL
     Indication: Rectal adenocarcinoma
     Dosage: 700MG, INTRAVENOUS ADMINISTRATION: 700 MG BOLUS INJECTION 4000 MG INFUSION WITH ELASTOMER
     Route: 042
     Dates: start: 20221010, end: 20230117
  6. FLUOROURACIL [Suspect]
     Active Substance: FLUOROURACIL
     Dosage: 4000 MG, INTRAVENOUS ADMINISTRATION: 700 MG BOLUS INJECTION 4000 MG INFUSION WITH ELASTOMER
     Route: 042
     Dates: start: 20221010, end: 20230117
  7. FLUOROURACIL [Suspect]
     Active Substance: FLUOROURACIL
     Dosage: 4000MG, INTRAVENOUS ROUTE: 700 MG BOLUS INJECTION 4000 MG INFUSION VIA ELASTOMER
     Route: 042
     Dates: start: 20221010, end: 20230207
  8. FLUOROURACIL [Suspect]
     Active Substance: FLUOROURACIL
     Dosage: INTRAVENOUS ROUTE: 700 MG BOLUS INJECTION 4000 MG INFUSION VIA ELASTOMER
     Route: 042
     Dates: start: 20221010, end: 20230207
  9. OXALIPLATIN [Suspect]
     Active Substance: OXALIPLATIN
     Indication: Rectal adenocarcinoma
     Dosage: 140 MG (MILLIGRAM)
     Route: 042
     Dates: start: 20221010, end: 20230117
  10. OXALIPLATIN [Suspect]
     Active Substance: OXALIPLATIN
     Dosage: 140 MG (MILLIGRAM)
     Route: 042
     Dates: start: 20221010, end: 20230207
  11. CHLORPHENIRAMINE MALEATE [Interacting]
     Active Substance: CHLORPHENIRAMINE MALEATE
     Dosage: 10 MG (MILLIGRAM)
     Route: 042
     Dates: start: 20221010, end: 20230117
  12. CHLORPHENIRAMINE MALEATE [Interacting]
     Active Substance: CHLORPHENIRAMINE MALEATE
     Dosage: 10 MG (MILLIGRAM)
     Route: 042
     Dates: start: 20221010, end: 20230207
  13. MVASI [Suspect]
     Active Substance: BEVACIZUMAB-AWWB
     Indication: Rectal adenocarcinoma
     Dosage: 390 MG (MILLIGRAM)
     Route: 042
     Dates: start: 20221010, end: 20230117
  14. MVASI [Suspect]
     Active Substance: BEVACIZUMAB-AWWB
     Dosage: 390 MG (MILLIGRAM)
     Route: 042
     Dates: start: 20221010, end: 20230207
  15. DEXAMETHASONE PHOSPHATE [Interacting]
     Active Substance: DEXAMETHASONE PHOSPHATE
     Dosage: 8 MG (MILLIGRAM)
     Route: 042
     Dates: start: 20221010, end: 20230117
  16. DEXAMETHASONE PHOSPHATE [Interacting]
     Active Substance: DEXAMETHASONE PHOSPHATE
     Dosage: 8 MG (MILLIGRAM)
     Route: 042
     Dates: start: 20221010, end: 20230207

REACTIONS (2)
  - Thrombocytopenia [Recovered/Resolved]
  - Thrombocytopenia [Recovered/Resolved]

NARRATIVE: CASE EVENT DATE: 20230131
